FAERS Safety Report 6454796-8 (Version None)
Quarter: 2009Q4

REPORT INFORMATION
  Report Type: 
  Country: None (occurrence: None)
  Receive Date: 20091118
  Receipt Date: 20091019
  Transmission Date: 20100525
  Serious: Yes (Hospitalization)
  Sender: FDA-Public Use
  Company Number: 281530

PATIENT
  Age: 56 Year
  Sex: Male

DRUGS (6)
  1. NOVOLOG [Suspect]
     Indication: INSULIN-REQUIRING TYPE 2 DIABETES MELLITUS
     Dosage: 60 IU, QD, SUBCUTANEOUS
     Route: 058
     Dates: start: 20051207, end: 20051221
  2. ANDOL (ACETYLSALICYLIC ACID) [Concomitant]
  3. IRUMED (LISINOPRIL) [Concomitant]
  4. LISINOPRIL [Concomitant]
  5. INSULIN BASAL /00646001/ (INSULIN HUMAN) [Concomitant]
  6. INSULIN HUMAN (INSULIN HUMAN) [Concomitant]

REACTIONS (2)
  - BLOOD FIBRINOGEN INCREASED [None]
  - LEUKOCYTOCLASTIC VASCULITIS [None]
